FAERS Safety Report 13522568 (Version 1)
Quarter: 2017Q2

REPORT INFORMATION
  Report Type: Spontaneous
  Country: CH (occurrence: DE)
  Receive Date: 20170508
  Receipt Date: 20170508
  Transmission Date: 20170830
  Serious: Yes (Life-Threatening, Hospitalization)
  Sender: FDA-Public Use
  Company Number: CH-LPDUSPRD-20170553

PATIENT
  Age: 75 Year
  Sex: Female
  Weight: 50 kg

DRUGS (1)
  1. FERINJECT [Suspect]
     Active Substance: FERRIC CARBOXYMALTOSE
     Dosage: UNKNOWN
     Route: 041

REACTIONS (6)
  - Osteomalacia [Unknown]
  - Haematemesis [Unknown]
  - Body temperature increased [Unknown]
  - Wheelchair user [Unknown]
  - Intestinal haemorrhage [Unknown]
  - Bedridden [Unknown]

NARRATIVE: CASE EVENT DATE: 201606
